FAERS Safety Report 21937460 (Version 1)
Quarter: 2023Q1

REPORT INFORMATION
  Report Type: Spontaneous
  Country: US (occurrence: None)
  Receive Date: 20230201
  Receipt Date: 20230201
  Transmission Date: 20230417
  Serious: No
  Sender: FDA-Public Use
  Company Number: None

PATIENT

DRUGS (2)
  1. SODIUM CHLORIDE [Suspect]
     Active Substance: SODIUM CHLORIDE
  2. SODIUM CHLORIDE [Suspect]
     Active Substance: SODIUM CHLORIDE

REACTIONS (3)
  - Wrong product stored [None]
  - Product label confusion [None]
  - Product packaging confusion [None]
